FAERS Safety Report 17055506 (Version 4)
Quarter: 2020Q2

REPORT INFORMATION
  Report Type: Spontaneous
  Country: US (occurrence: US)
  Receive Date: 20191120
  Receipt Date: 20200402
  Transmission Date: 20200713
  Serious: No
  Sender: FDA-Public Use
  Company Number: US-DSJP-DSU-2019-144854

PATIENT

DRUGS (2)
  1. TURALIO [Suspect]
     Active Substance: PEXIDARTINIB HYDROCHLORIDE
     Indication: SYNOVITIS
     Dosage: 400 MG, BID
     Route: 048
     Dates: start: 20191101, end: 2019
  2. TURALIO [Suspect]
     Active Substance: PEXIDARTINIB HYDROCHLORIDE
     Dosage: 200 MG, BID
     Route: 048
     Dates: start: 2019, end: 2019

REACTIONS (19)
  - Fatigue [Unknown]
  - Ageusia [Unknown]
  - Pyrexia [Unknown]
  - Nasal congestion [Unknown]
  - Cough [Unknown]
  - Nausea [Unknown]
  - Swelling face [Unknown]
  - Decreased appetite [Unknown]
  - Dysgeusia [Unknown]
  - Face oedema [Unknown]
  - Chills [Unknown]
  - Pain [Unknown]
  - Influenza like illness [Unknown]
  - Vomiting [Unknown]
  - Asthenia [Unknown]
  - Off label use [Recovered/Resolved]
  - Breast pain [Unknown]
  - Rash [Unknown]
  - Quality of life decreased [Unknown]

NARRATIVE: CASE EVENT DATE: 2019
